FAERS Safety Report 8909448 (Version 3)
Quarter: 2013Q1

REPORT INFORMATION
  Report Type: Spontaneous
  Country: JP (occurrence: None)
  Receive Date: 20121109
  Receipt Date: 20130129
  Transmission Date: 20140127
  Serious: Yes (Hospitalization)
  Sender: FDA-Public Use
  Company Number: DSA_60813_2012

PATIENT
  Age: 50 Year
  Sex: Male

DRUGS (15)
  1. FLUOROURACIL [Suspect]
     Indication: RECTAL CANCER
     Route: 040
     Dates: start: 20110121, end: 20110121
  2. OXALIPLATIN (OXALIPLATIN) [Suspect]
     Indication: RECTAL CANCER
     Route: 041
     Dates: start: 20110121, end: 20110121
  3. CALCIUM LEVOFOLINATE [Suspect]
     Route: 041
     Dates: start: 20110121, end: 20110121
  4. DEXAMETHASONE SODIUM PHOSPHATE [Concomitant]
  5. GRAN [Concomitant]
  6. CEFEPIME HYDROCHLORIDE [Concomitant]
  7. ALOXI [Concomitant]
  8. NEOPHAGEN /00467204/ [Concomitant]
  9. FLAVINE ADENINE DINUCLEOTIDE [Concomitant]
  10. MENATETRENONE [Concomitant]
  11. URSODEOXYCHOLIC ACID [Concomitant]
  12. MAGNESIUM OXIDE [Concomitant]
  13. PANTOSIN [Concomitant]
  14. DAIKENTYUTO [Concomitant]
  15. FERROMIA [Concomitant]

REACTIONS (6)
  - Febrile neutropenia [None]
  - Aspartate aminotransferase increased [None]
  - Alanine aminotransferase increased [None]
  - Gamma-glutamyltransferase increased [None]
  - Pyrexia [None]
  - Malaise [None]
